FAERS Safety Report 19736670 (Version 2)
Quarter: 2021Q3

REPORT INFORMATION
  Report Type: Spontaneous
  Country: US (occurrence: US)
  Receive Date: 20210824
  Receipt Date: 20210922
  Transmission Date: 20211014
  Serious: No
  Sender: FDA-Public Use
  Company Number: US-ELI_LILLY_AND_COMPANY-US202108009363

PATIENT
  Age: 56 Year
  Sex: Female

DRUGS (1)
  1. TALTZ [Suspect]
     Active Substance: IXEKIZUMAB
     Indication: PRODUCT USED FOR UNKNOWN INDICATION
     Dosage: 80 MG, UNKNOWN
     Route: 058
     Dates: start: 20210527, end: 20210819

REACTIONS (9)
  - Injection site bruising [Unknown]
  - Injection site mass [Unknown]
  - Decreased appetite [Unknown]
  - Pyrexia [Unknown]
  - Arthralgia [Unknown]
  - Malaise [Unknown]
  - Injection site urticaria [Unknown]
  - Underdose [Unknown]
  - Injection site vesicles [Unknown]

NARRATIVE: CASE EVENT DATE: 202106
